FAERS Safety Report 8618714-6 (Version None)
Quarter: 2012Q3

REPORT INFORMATION
  Report Type: 
  Country: None (occurrence: None)
  Receive Date: 20120824
  Receipt Date: 20120821
  Transmission Date: 20120928
  Serious: Yes (Life-Threatening)
  Sender: FDA-Public Use
  Company Number: NL-JNJFOC-20120810350

PATIENT
  Sex: Male
  Weight: 81 kg

DRUGS (3)
  1. STELARA [Suspect]
     Indication: PSORIASIS
     Dosage: 90MG/ML
     Route: 058
     Dates: start: 20100601, end: 20120801
  2. RANITIDINE A [Concomitant]
     Route: 065
     Dates: start: 20120701
  3. OMEPRAZOL A [Concomitant]
     Route: 065
     Dates: start: 20110901, end: 20120701

REACTIONS (2)
  - DIFFUSE LARGE B-CELL LYMPHOMA [None]
  - HYPERHIDROSIS [None]
